FAERS Safety Report 14896565 (Version 2)
Quarter: 2018Q2

REPORT INFORMATION
  Report Type: Spontaneous
  Country: NO (occurrence: NO)
  Receive Date: 20180515
  Receipt Date: 20180604
  Transmission Date: 20180711
  Serious: Yes (Life-Threatening, Hospitalization, Disabling, Other)
  Sender: FDA-Public Use
  Company Number: NO-PFIZER INC-2018196148

PATIENT
  Age: 55 Year
  Sex: Male

DRUGS (8)
  1. METHOTREXATE SODIUM. [Suspect]
     Active Substance: METHOTREXATE SODIUM
     Indication: PSORIATIC ARTHROPATHY
     Dosage: STARTED TOGETHER WITH CIMZIA IN THE SUMMER OF 2014
     Route: 065
     Dates: start: 2014, end: 2017
  2. CIMZIA [Suspect]
     Active Substance: CERTOLIZUMAB PEGOL
     Indication: PSORIATIC ARTHROPATHY
     Dosage: UNK
     Route: 058
     Dates: start: 2014, end: 2017
  3. MAGNESIUM [Concomitant]
     Active Substance: MAGNESIUM
     Dosage: 120 MG, 1X/DAY
     Route: 065
  4. NYCOPLUS C-VITAMIN [Concomitant]
     Dosage: 1000 MG, 1X/DAY
     Route: 048
  5. SEROQUEL [Concomitant]
     Active Substance: QUETIAPINE FUMARATE
     Indication: DEPRESSION
     Dosage: 100 MG, 1X/DAY (EVENING)
     Route: 048
  6. PANTOPRAZOLE [Concomitant]
     Active Substance: PANTOPRAZOLE
     Dosage: 40 MG, 1X/DAY (EVENING)
     Route: 065
  7. ADALAT [Concomitant]
     Active Substance: NIFEDIPINE
     Dosage: 20 MG, 1X/DAY (MORNING)
     Route: 048
  8. RITALIN [Concomitant]
     Active Substance: METHYLPHENIDATE HYDROCHLORIDE
     Indication: ATTENTION DEFICIT/HYPERACTIVITY DISORDER
     Dosage: 80 MG, 1X/DAY (MORNING)
     Route: 048

REACTIONS (8)
  - Meningitis staphylococcal [Recovering/Resolving]
  - Spinal cord abscess [Recovering/Resolving]
  - Osteomyelitis [Recovering/Resolving]
  - Acute respiratory failure [Recovered/Resolved]
  - Staphylococcal sepsis [Recovering/Resolving]
  - Paresis [Not Recovered/Not Resolved]
  - Infectious pleural effusion [Recovering/Resolving]
  - Cellulitis [Recovering/Resolving]

NARRATIVE: CASE EVENT DATE: 2017
